FAERS Safety Report 8028390-1 (Version None)
Quarter: 2012Q1

REPORT INFORMATION
  Report Type: 
  Country: None (occurrence: None)
  Receive Date: 20120106
  Receipt Date: 20120104
  Transmission Date: 20120608
  Serious: Yes (Other)
  Sender: FDA-Public Use
  Company Number: GB-ROCHE-1027908

PATIENT

DRUGS (3)
  1. LUCENTIS [Suspect]
     Dates: start: 20090911
  2. LUCENTIS [Suspect]
     Dates: start: 20100212
  3. LUCENTIS [Suspect]
     Indication: PRODUCT USED FOR UNKNOWN INDICATION
     Dates: start: 20090810

REACTIONS (1)
  - MYOCARDIAL INFARCTION [None]
